FAERS Safety Report 22647040 (Version 1)
Quarter: 2023Q2

REPORT INFORMATION
  Report Type: Spontaneous
  Country: US (occurrence: US)
  Receive Date: 20230627
  Receipt Date: 20230627
  Transmission Date: 20230722
  Serious: No
  Sender: FDA-Public Use
  Company Number: US-PERRIGO-23US006928

PATIENT
  Age: 64 Year
  Sex: Female
  Weight: 63.492 kg

DRUGS (4)
  1. NASONEX [Suspect]
     Active Substance: MOMETASONE FUROATE
     Indication: Nasal congestion
     Dosage: 50 MCG IN EACH NOSTRIL, SINGLE
     Route: 045
     Dates: start: 20230610, end: 20230610
  2. NASONEX [Suspect]
     Active Substance: MOMETASONE FUROATE
     Indication: Seasonal allergy
  3. VITAMIN D NOS [Concomitant]
     Active Substance: VITAMIN D NOS
     Indication: Vitamin D decreased
     Dosage: UNK
     Route: 065
     Dates: start: 20230509
  4. TRAMADOL [Concomitant]
     Active Substance: TRAMADOL
     Indication: Pain
     Dosage: UNK
     Route: 065
     Dates: start: 2013

REACTIONS (7)
  - Nasal discomfort [Recovering/Resolving]
  - Nasal inflammation [Recovering/Resolving]
  - Condition aggravated [Recovered/Resolved]
  - Rhinalgia [Recovering/Resolving]
  - Epistaxis [Recovering/Resolving]
  - Drug ineffective [Unknown]
  - Underdose [Unknown]

NARRATIVE: CASE EVENT DATE: 20230610
